FAERS Safety Report 15294879 (Version 1)
Quarter: 2018Q3

REPORT INFORMATION
  Report Type: Other
  Country: DE (occurrence: DE)
  Receive Date: 20180820
  Receipt Date: 20180820
  Transmission Date: 20181010
  Serious: Yes (Hospitalization)
  Sender: FDA-Public Use
  Company Number: DE-LUPIN PHARMACEUTICALS INC.-2018-05747

PATIENT
  Age: 67 Year
  Sex: Female

DRUGS (17)
  1. PREGABALIN. [Suspect]
     Active Substance: PREGABALIN
     Dosage: 25 MG, QD
     Route: 048
     Dates: start: 20161207
  2. AMLODIPINE [Concomitant]
     Active Substance: AMLODIPINE BESYLATE
     Indication: PRODUCT USED FOR UNKNOWN INDICATION
     Dosage: 10 MG, QD, TAKING FOR MONTHS
     Route: 048
  3. ZINK                               /00156502/ [Concomitant]
     Indication: PRODUCT USED FOR UNKNOWN INDICATION
     Dosage: 20 MG, QD
     Route: 048
     Dates: start: 20161116, end: 20161205
  4. PREGABALIN. [Suspect]
     Active Substance: PREGABALIN
     Dosage: 50 MG, QD
     Route: 048
     Dates: start: 20161110
  5. PREGABALIN. [Suspect]
     Active Substance: PREGABALIN
     Dosage: 100 MG, QD
     Route: 048
     Dates: start: 20161205
  6. MIRTAZAPINE. [Suspect]
     Active Substance: MIRTAZAPINE
     Dosage: UNK, 45 ? 0 MG
     Route: 048
     Dates: start: 20161220, end: 20161226
  7. MIRTAZAPINE. [Suspect]
     Active Substance: MIRTAZAPINE
     Dosage: 30 MG, QD
     Route: 048
     Dates: start: 20170920, end: 20171019
  8. PANTOPRAZOL                        /01263201/ [Concomitant]
     Active Substance: PANTOPRAZOLE
     Indication: PRODUCT USED FOR UNKNOWN INDICATION
     Dosage: 20 MG, QD
     Route: 048
     Dates: start: 20161116
  9. MIRTAZAPINE. [Suspect]
     Active Substance: MIRTAZAPINE
     Dosage: 45 MG, QD
     Route: 048
     Dates: start: 20161020, end: 20161219
  10. QUETIAPINE. [Suspect]
     Active Substance: QUETIAPINE
     Indication: PRODUCT USED FOR UNKNOWN INDICATION
     Dosage: 75 MG, QD
     Route: 048
     Dates: start: 20161108
  11. MIRTAZAPINE. [Suspect]
     Active Substance: MIRTAZAPINE
     Indication: PRODUCT USED FOR UNKNOWN INDICATION
     Dosage: 15 MG, QD
     Route: 048
     Dates: start: 20160926
  12. PREGABALIN. [Suspect]
     Active Substance: PREGABALIN
     Dosage: 125 MG, QD
     Route: 048
     Dates: start: 20161201, end: 20161204
  13. PROSPAN                            /01017805/ [Concomitant]
     Indication: PRODUCT USED FOR UNKNOWN INDICATION
     Dosage: 15 ML, QD
     Route: 048
     Dates: start: 20161117, end: 20161129
  14. PREGABALIN. [Suspect]
     Active Substance: PREGABALIN
     Indication: PRODUCT USED FOR UNKNOWN INDICATION
     Dosage: 125 MG, QD
     Route: 048
     Dates: start: 20161118, end: 20161121
  15. PREGABALIN. [Suspect]
     Active Substance: PREGABALIN
     Dosage: 150 MG, QD
     Route: 048
     Dates: start: 20161122, end: 20161130
  16. PREGABALIN. [Suspect]
     Active Substance: PREGABALIN
     Dosage: 50 MG, QD
     Route: 048
     Dates: start: 20161206
  17. PREGABALIN. [Suspect]
     Active Substance: PREGABALIN
     Dosage: 100 MG, QD
     Route: 048
     Dates: start: 20161111, end: 20161117

REACTIONS (1)
  - Oedema peripheral [Recovered/Resolved]

NARRATIVE: CASE EVENT DATE: 20161128
